FAERS Safety Report 19189544 (Version 3)
Quarter: 2021Q3

REPORT INFORMATION
  Report Type: Report from Study
  Country: US (occurrence: US)
  Receive Date: 20210428
  Receipt Date: 20210726
  Transmission Date: 20211014
  Serious: Yes (Hospitalization, Other)
  Sender: FDA-Public Use
  Company Number: US-BIOVITRUM-2021US2057

PATIENT
  Age: 11 Year
  Sex: Female

DRUGS (3)
  1. KINERET [Suspect]
     Active Substance: ANAKINRA
     Route: 058
     Dates: start: 20190502
  2. KINERET [Suspect]
     Active Substance: ANAKINRA
     Indication: HAEMOPHAGOCYTIC LYMPHOHISTIOCYTOSIS
     Dosage: ONCE DAILY, MAY INCREASE TO TWICE DAILY FOR FLARE 100 MG/0.67 ML
     Route: 058
     Dates: start: 201904
  3. KINERET [Suspect]
     Active Substance: ANAKINRA
     Dosage: PATIENT CONTINUES HER CURRENT DOSE OF MEDICATION AND IS CURRENTLY TAKING TWICE DAILY.
     Route: 058
     Dates: start: 201905

REACTIONS (11)
  - Haemophagocytic lymphohistiocytosis [Unknown]
  - Hepatic enzyme increased [Unknown]
  - Nasopharyngitis [Unknown]
  - Blood fibrinogen increased [Unknown]
  - Vaginal haemorrhage [Unknown]
  - Neutrophil count decreased [Unknown]
  - Condition aggravated [Unknown]
  - Thyroid disorder [Unknown]
  - Periorbital cellulitis [Unknown]
  - Blood lactate dehydrogenase increased [Unknown]
  - Off label use [Not Recovered/Not Resolved]

NARRATIVE: CASE EVENT DATE: 201904
